FAERS Safety Report 5878545-7 (Version None)
Quarter: 2008Q3

REPORT INFORMATION
  Report Type: 
  Country: None (occurrence: None)
  Receive Date: 20080909
  Receipt Date: 20080822
  Transmission Date: 20090109
  Serious: Yes (Hospitalization, Other)
  Sender: FDA-Public Use
  Company Number: JPI-P-004006

PATIENT
  Age: 70 Year
  Sex: Female

DRUGS (15)
  1. LUVOX CR [Suspect]
     Indication: DEPRESSION
     Dosage: 50 MG (50 MG,1 IN 1 D),ORAL ; 100 MG (100 MG,1 IN 1 D),ORAL;  75 MG (75 MG,1 IN 1 D),ORAL
     Route: 048
     Dates: start: 20060118, end: 20060122
  2. LUVOX CR [Suspect]
     Indication: DEPRESSION
     Dosage: 50 MG (50 MG,1 IN 1 D),ORAL ; 100 MG (100 MG,1 IN 1 D),ORAL;  75 MG (75 MG,1 IN 1 D),ORAL
     Route: 048
     Dates: start: 20060123, end: 20060204
  3. LUVOX CR [Suspect]
     Indication: DEPRESSION
     Dosage: 50 MG (50 MG,1 IN 1 D),ORAL ; 100 MG (100 MG,1 IN 1 D),ORAL;  75 MG (75 MG,1 IN 1 D),ORAL
     Route: 048
     Dates: start: 20060201, end: 20080527
  4. DOTHIEPIN HYDROCHLORIDE [Suspect]
     Indication: DEPRESSION
     Dosage: 25 MG (25 MG, L IN 1 D),ORAL; 75 ,G, (75 MG, 1 IN 1 D), ORAL;  25 MG (25 MG, 1 IN 1 D), ORAL
     Route: 048
     Dates: start: 20060123, end: 20060124
  5. DOTHIEPIN HYDROCHLORIDE [Suspect]
     Indication: DEPRESSION
     Dosage: 25 MG (25 MG, L IN 1 D),ORAL; 75 ,G, (75 MG, 1 IN 1 D), ORAL;  25 MG (25 MG, 1 IN 1 D), ORAL
     Route: 048
     Dates: start: 20060125, end: 20060207
  6. DOTHIEPIN HYDROCHLORIDE [Suspect]
     Indication: DEPRESSION
     Dosage: 25 MG (25 MG, L IN 1 D),ORAL; 75 ,G, (75 MG, 1 IN 1 D), ORAL;  25 MG (25 MG, 1 IN 1 D), ORAL
     Route: 048
     Dates: start: 20060208, end: 20061205
  7. ETHYL LOFLAZEPATE [Suspect]
  8. FLUNITRAZEPAM [Suspect]
  9. NON-PYRINE COLD PREPARATION [Concomitant]
  10. TRANEXAMIC ACID [Suspect]
  11. FOMINOBEN HYDROCHLORIDE [Suspect]
  12. SULPIRIDE [Concomitant]
  13. CLOMIPRAMINE HYDROCHLORIDE [Concomitant]
  14. HYDROXYZINE HYDROCHLORIDE [Concomitant]
  15. TRAZODONE HCL [Concomitant]

REACTIONS (14)
  - ANOREXIA [None]
  - ANXIETY [None]
  - APATHY [None]
  - BRAIN OEDEMA [None]
  - DELIRIUM [None]
  - DEPRESSION [None]
  - DISEASE RECURRENCE [None]
  - DIZZINESS [None]
  - DRUG INTERACTION [None]
  - FALL [None]
  - INSOMNIA [None]
  - LAZINESS [None]
  - MOOD ALTERED [None]
  - PSYCHIATRIC SYMPTOM [None]
